FAERS Safety Report 9969952 (Version 1)
Quarter: 2014Q1

REPORT INFORMATION
  Report Type: Spontaneous
  Country: US (occurrence: None)
  Receive Date: 20140131
  Receipt Date: 20140131
  Transmission Date: 20141002
  Serious: Yes (Other)
  Sender: FDA-Public Use
  Company Number: 074351

PATIENT
  Sex: Female
  Weight: 65.8 kg

DRUGS (2)
  1. KEPPRA [Suspect]
     Indication: CONVULSION
     Dates: start: 2012
  2. FOLIC ACID [Concomitant]

REACTIONS (1)
  - Convulsion [None]
